FAERS Safety Report 15427106 (Version 5)
Quarter: 2018Q4

REPORT INFORMATION
  Report Type: Spontaneous
  Country: US (occurrence: US)
  Receive Date: 20180925
  Receipt Date: 20181227
  Transmission Date: 20190204
  Serious: No
  Sender: FDA-Public Use
  Company Number: US-ACTELION-A-US2018-179076

PATIENT
  Age: 57 Year
  Sex: Female
  Weight: 72.11 kg

DRUGS (8)
  1. ADCIRCA [Concomitant]
     Active Substance: TADALAFIL
  2. VELETRI [Suspect]
     Active Substance: EPOPROSTENOL
     Indication: PULMONARY ARTERIAL HYPERTENSION
     Dosage: 3 NG/KG, PER MIN
     Route: 042
     Dates: start: 20180912
  3. VELETRI [Suspect]
     Active Substance: EPOPROSTENOL
     Dosage: 16 NG/KG, PER MIN
     Route: 042
  4. VELETRI [Suspect]
     Active Substance: EPOPROSTENOL
     Dosage: 2 NG/KG, PER MIN
     Route: 042
  5. VELETRI [Suspect]
     Active Substance: EPOPROSTENOL
     Dosage: 14 NG/KG, PER MIN
     Route: 042
  6. VELETRI [Suspect]
     Active Substance: EPOPROSTENOL
     Dosage: 24 NG/KG, PER MIN
     Route: 042
  7. VELETRI [Suspect]
     Active Substance: EPOPROSTENOL
     Dosage: 8 NG/KG, UNK
     Route: 042
  8. LETAIRIS [Concomitant]
     Active Substance: AMBRISENTAN

REACTIONS (22)
  - Malaise [Unknown]
  - Sinusitis [Unknown]
  - Headache [Unknown]
  - Pain in jaw [Unknown]
  - Syncope [Unknown]
  - Diarrhoea [Unknown]
  - Device issue [Unknown]
  - Anaemia [Not Recovered/Not Resolved]
  - Arthralgia [Unknown]
  - Wound [Unknown]
  - Haemorrhage [Unknown]
  - Pain [Unknown]
  - Catheter placement [Unknown]
  - Back pain [Unknown]
  - Vomiting [Recovering/Resolving]
  - Device dislocation [Unknown]
  - Migraine [Not Recovered/Not Resolved]
  - Nausea [Unknown]
  - Throat irritation [Recovering/Resolving]
  - Feeling hot [Unknown]
  - Presyncope [Unknown]
  - Myalgia [Unknown]

NARRATIVE: CASE EVENT DATE: 20181023
